FAERS Safety Report 4967554-8 (Version None)
Quarter: 2006Q2

REPORT INFORMATION
  Report Type: 
  Country: None (occurrence: None)
  Receive Date: 20060410
  Receipt Date: 20060403
  Transmission Date: 20061013
  Serious: Yes (Death)
  Sender: FDA-Public Use
  Company Number: JP-JPN-A200601127

PATIENT
  Age: 33 Year
  Sex: Female
  Weight: 41 kg

DRUGS (1)
  1. BUPROPION HCL [Suspect]
     Indication: DEPRESSION
     Route: 048
     Dates: start: 20050913, end: 20060220

REACTIONS (6)
  - CARDIAC ARREST [None]
  - DEATH [None]
  - JAW DISORDER [None]
  - LOSS OF CONSCIOUSNESS [None]
  - OEDEMA [None]
  - RESPIRATORY ARREST [None]
